FAERS Safety Report 9329390 (Version 3)
Quarter: 2013Q3

REPORT INFORMATION
  Report Type: Spontaneous
  Country: DK (occurrence: DK)
  Receive Date: 20130604
  Receipt Date: 20130709
  Transmission Date: 20140515
  Serious: Yes (Other)
  Sender: FDA-Public Use
  Company Number: DK-GLAXOSMITHKLINE-B0896477A

PATIENT
  Sex: Female

DRUGS (14)
  1. LAPATINIB [Suspect]
     Indication: BREAST CANCER
     Route: 065
  2. HERCEPTIN [Suspect]
     Indication: BREAST CANCER
     Route: 065
     Dates: start: 200512, end: 20130307
  3. HERCEPTIN [Suspect]
     Indication: BREAST CANCER
     Route: 065
     Dates: start: 20130429
  4. XELODA [Suspect]
     Indication: BREAST CANCER
     Route: 065
  5. VINORELBINE [Suspect]
     Indication: BREAST CANCER
     Route: 065
  6. DOCETAXEL [Suspect]
     Indication: BREAST CANCER
     Route: 065
  7. EPIRUBICIN [Suspect]
     Indication: BREAST CANCER
     Route: 065
  8. GEMCITABINE [Suspect]
     Indication: BREAST CANCER
     Route: 065
  9. TAXOL [Suspect]
     Indication: BREAST CANCER
     Route: 065
  10. ZOLADEX [Suspect]
     Indication: BREAST CANCER
     Route: 065
  11. LETROZOLE [Suspect]
     Indication: BREAST CANCER
     Route: 065
  12. TAMOXIFEN [Concomitant]
  13. PANTOPRAZOLE [Concomitant]
     Route: 065
     Dates: start: 20121221
  14. CONTALGIN [Concomitant]
     Route: 065
     Dates: start: 20130605

REACTIONS (3)
  - Pericardial effusion [Not Recovered/Not Resolved]
  - Disease progression [Unknown]
  - Pleural effusion [Unknown]
